FAERS Safety Report 11880687 (Version 1)
Quarter: 2015Q4

REPORT INFORMATION
  Report Type: Report from Study
  Country: GR (occurrence: GR)
  Receive Date: 20151230
  Receipt Date: 20151230
  Transmission Date: 20160305
  Serious: Yes (Hospitalization)
  Sender: FDA-Public Use
  Company Number: GR-ABBVIE-15P-066-1526657-00

PATIENT
  Age: 59 Year
  Sex: Female

DRUGS (6)
  1. DUODOPA [Suspect]
     Active Substance: CARBIDOPA\LEVODOPA
     Dosage: MORNING DOSE: 5 ML,?CONTINUOUS RATE; 4.5 ML/H,?EXTRA DOSE: 2.5 ML
     Route: 050
     Dates: start: 20151222
  2. AKINETON [Concomitant]
     Active Substance: BIPERIDEN HYDROCHLORIDE
     Indication: PRODUCT USED FOR UNKNOWN INDICATION
     Route: 048
  3. CLONOTRIL [Concomitant]
     Indication: PRODUCT USED FOR UNKNOWN INDICATION
     Route: 048
  4. DUODOPA [Suspect]
     Active Substance: CARBIDOPA\LEVODOPA
     Indication: PARKINSON^S DISEASE
     Dosage: MORNING DOSE: 9 ML,?CONTINUOUS RATE: 7 ML/H,?EXTRA DOSE: 1 ML
     Route: 050
     Dates: start: 20151216
  5. DUODOPA [Suspect]
     Active Substance: CARBIDOPA\LEVODOPA
     Dosage: MORNING DOSE: 5 ML,?CONTINUOUS RATE; 4.3 ML/H,?EXTRA DOSE: 2.5 ML
     Route: 050
     Dates: end: 20151222
  6. FORSTEO [Concomitant]
     Active Substance: TERIPARATIDE
     Indication: OSTEOPOROSIS
     Dates: start: 20150525

REACTIONS (4)
  - Abdominal pain [Not Recovered/Not Resolved]
  - Device issue [Unknown]
  - Musculoskeletal stiffness [Not Recovered/Not Resolved]
  - Incorrect route of drug administration [Recovered/Resolved]

NARRATIVE: CASE EVENT DATE: 20151216
